FAERS Safety Report 9802889 (Version 1)
Quarter: 2014Q1

REPORT INFORMATION
  Report Type: Spontaneous
  Country: US (occurrence: US)
  Receive Date: 20140108
  Receipt Date: 20140108
  Transmission Date: 20141002
  Serious: No
  Sender: FDA-Public Use
  Company Number: US-GLAXOSMITHKLINE-A1042372A

PATIENT
  Sex: Female

DRUGS (2)
  1. POTIGA [Suspect]
     Indication: EPILEPSY
     Dosage: 50MG UNKNOWN
     Route: 065
     Dates: start: 201009
  2. LAMICTAL [Suspect]
     Indication: EPILEPSY
     Dosage: 100MG UNKNOWN
     Route: 065
     Dates: start: 201009

REACTIONS (4)
  - Dizziness [Unknown]
  - Nausea [Unknown]
  - Diplopia [Unknown]
  - Weight increased [Unknown]
